FAERS Safety Report 8215291 (Version 2)
Quarter: 2012Q4

REPORT INFORMATION
  Report Type: 
  Country: US (occurrence: US)
  Receive Date: 20111031
  Receipt Date: 20120911
  Transmission Date: 20130627
  Serious: Yes (Other)
  Sender: FDA-Public Use
  Company Number: US-US-EMD SERONO, INC.-7091433

PATIENT
  Sex: Male
  Weight: 86 kg

DRUGS (2)
  1. REBIF [Suspect]
     Indication: MULTIPLE SCLEROSIS
     Route: 058
     Dates: start: 20101025
  2. ADVIL [Concomitant]
     Indication: PREMEDICATION

REACTIONS (3)
  - Optic nerve disorder [Not Recovered/Not Resolved]
  - Sensory disturbance [Recovered/Resolved]
  - Pyrexia [Unknown]
